FAERS Safety Report 7797157-1 (Version None)
Quarter: 2011Q4

REPORT INFORMATION
  Report Type: 
  Country: None (occurrence: None)
  Receive Date: 20111003
  Receipt Date: 20110923
  Transmission Date: 20120403
  Serious: Yes (Other)
  Sender: FDA-Public Use
  Company Number: 2011MA014490

PATIENT
  Age: 88 Year
  Sex: Female

DRUGS (12)
  1. KADIAN [Suspect]
     Indication: PRODUCT USED FOR UNKNOWN INDICATION
     Dosage: SC
     Route: 058
  2. VANCOMYCIN [Suspect]
     Indication: PRODUCT USED FOR UNKNOWN INDICATION
     Dosage: IV
     Route: 042
  3. TROSPIUM CHLORIDE [Concomitant]
  4. METOCLOPRAMIDE [Suspect]
     Indication: PRODUCT USED FOR UNKNOWN INDICATION
     Dosage: SC
     Route: 058
  5. METRONIDAZOLE [Suspect]
     Indication: PRODUCT USED FOR UNKNOWN INDICATION
     Dosage: IV
     Route: 042
  6. POLYETHYLENE GLYCOL [Concomitant]
  7. SIMVASTATIN [Concomitant]
  8. CETIRIZINE HCL [Concomitant]
  9. AMITRIPTYLINE HCL [Concomitant]
  10. CIPROFLOXACIN [Suspect]
     Indication: PRODUCT USED FOR UNKNOWN INDICATION
     Dosage: IV
     Route: 042
  11. LIDOCAINE [Concomitant]
  12. PROPYLTHIOURACIL [Concomitant]

REACTIONS (1)
  - FACE OEDEMA [None]
